FAERS Safety Report 6148977-0 (Version None)
Quarter: 2009Q2

REPORT INFORMATION
  Report Type: 
  Country: None (occurrence: None)
  Receive Date: 20090406
  Receipt Date: 20090325
  Transmission Date: 20091009
  Serious: Yes (Other)
  Sender: FDA-Public Use
  Company Number: 2009-01195

PATIENT
  Age: 70 Year
  Sex: Female

DRUGS (1)
  1. VELCADE [Suspect]
     Indication: DRUG USE FOR UNKNOWN INDICATION
     Dosage: 1.3 MG,   INTRAVENOUS; 1 MG,   INTRAVENOUS
     Route: 042

REACTIONS (4)
  - ABNORMAL BEHAVIOUR [None]
  - HALLUCINATION [None]
  - NERVOUS SYSTEM DISORDER [None]
  - VERTIGO [None]
